FAERS Safety Report 8323252-4 (Version None)
Quarter: 2012Q2

REPORT INFORMATION
  Report Type: 
  Country: None (occurrence: None)
  Receive Date: 20120430
  Receipt Date: 20120416
  Transmission Date: 20120825
  Serious: Yes (Other)
  Sender: FDA-Public Use
  Company Number: CHPA2012US009500

PATIENT
  Age: 90 Year
  Sex: Male

DRUGS (1)
  1. ACETAMINOPHEN, DIPHENHYDRAMINE CITRATE [Suspect]
     Indication: INSOMNIA
     Dosage: 1 DF, UNK
     Route: 048

REACTIONS (3)
  - MALIGNANT MELANOMA [None]
  - OFF LABEL USE [None]
  - BLOOD PRESSURE ABNORMAL [None]
